FAERS Safety Report 7536674-6 (Version None)
Quarter: 2011Q2

REPORT INFORMATION
  Report Type: 
  Country: None (occurrence: None)
  Receive Date: 20110608
  Receipt Date: 20110608
  Transmission Date: 20111010
  Serious: Yes (Life-Threatening, Hospitalization, Disabling, Congenital Anomaly, Other)
  Sender: FDA-Public Use
  Company Number: None

PATIENT
  Sex: Female
  Weight: 88.905 kg

DRUGS (2)
  1. ACETAMINOPHEN [Suspect]
     Indication: TOOTHACHE
     Dosage: 6000 MG PO
     Route: 048
  2. TYLENOL W/ CODEINE NO. 3 [Suspect]
     Dosage: PO
     Route: 048

REACTIONS (16)
  - NAUSEA [None]
  - HAEMATEMESIS [None]
  - INCORRECT DOSE ADMINISTERED [None]
  - BLOOD BILIRUBIN INCREASED [None]
  - LIVER TRANSPLANT [None]
  - TRANSPLANT REJECTION [None]
  - OVERDOSE [None]
  - ABDOMINAL PAIN UPPER [None]
  - INTERNATIONAL NORMALISED RATIO INCREASED [None]
  - ACIDOSIS [None]
  - HEPATOTOXICITY [None]
  - LETHARGY [None]
  - ENCEPHALOPATHY [None]
  - DRUG EXPOSURE DURING PREGNANCY [None]
  - HAEMOLYTIC ANAEMIA [None]
  - ABORTION INDUCED [None]
